FAERS Safety Report 8523099 (Version 3)
Quarter: 2013Q3

REPORT INFORMATION
  Report Type: Spontaneous
  Country: US (occurrence: US)
  Receive Date: 20120420
  Receipt Date: 20130701
  Transmission Date: 20140515
  Serious: Yes (Hospitalization, Other)
  Sender: FDA-Public Use
  Company Number: US-BAYER-2012-037947

PATIENT
  Age: 20 Year
  Sex: Female
  Weight: 54 kg

DRUGS (3)
  1. YAZ [Suspect]
     Dosage: UNK
     Dates: start: 201001
  2. TYLENOL [Concomitant]
     Route: 048
  3. RESPIRATORY SYSTEM [Concomitant]
     Route: 045

REACTIONS (10)
  - Deep vein thrombosis [None]
  - Pulmonary embolism [None]
  - Pulmonary infarction [None]
  - Pain [None]
  - Injury [None]
  - Scar [None]
  - Dyspnoea [None]
  - Painful respiration [None]
  - Joint swelling [None]
  - Respiratory failure [None]
